FAERS Safety Report 15131413 (Version 1)
Quarter: 2018Q3

REPORT INFORMATION
  Report Type: Spontaneous
  Country: US (occurrence: US)
  Receive Date: 20180711
  Receipt Date: 20180711
  Transmission Date: 20181010
  Serious: No
  Sender: FDA-Public Use
  Company Number: US-BAYER-2018-126281

PATIENT
  Sex: Female
  Weight: 59 kg

DRUGS (2)
  1. LOTRIMIN ULTRA ANTIFUNGAL [Suspect]
     Active Substance: BUTENAFINE HYDROCHLORIDE
     Dosage: UNK
     Route: 061
  2. LOTRIMIN [Suspect]
     Active Substance: CLOTRIMAZOLE
     Dosage: UNK(1 LARGE DROP)
     Route: 061

REACTIONS (1)
  - Drug ineffective [Unknown]
